FAERS Safety Report 17136449 (Version 1)
Quarter: 2019Q4

REPORT INFORMATION
  Report Type: Spontaneous
  Country: US (occurrence: US)
  Receive Date: 20191210
  Receipt Date: 20191210
  Transmission Date: 20200122
  Serious: No
  Sender: FDA-Public Use
  Company Number: US-PERRIGO-18US012319

PATIENT
  Age: 70 Year
  Sex: Male
  Weight: 61.22 kg

DRUGS (1)
  1. CLOTRIMAZOLE. [Suspect]
     Active Substance: CLOTRIMAZOLE
     Indication: FUNGAL INFECTION
     Dosage: 10 MG, 4 TO 5 TIMES DAILY
     Route: 048
     Dates: start: 20181021

REACTIONS (3)
  - Drug ineffective for unapproved indication [Unknown]
  - Paraesthesia oral [Recovered/Resolved]
  - Taste disorder [Recovered/Resolved]

NARRATIVE: CASE EVENT DATE: 201810
